FAERS Safety Report 8130007-2 (Version None)
Quarter: 2012Q1

REPORT INFORMATION
  Report Type: 
  Country: None (occurrence: None)
  Receive Date: 20120210
  Receipt Date: 20120130
  Transmission Date: 20120608
  Serious: Yes (Life-Threatening, Disabling, Other)
  Sender: FDA-Public Use
  Company Number: US-ROCHE-1007430

PATIENT
  Age: 66 Year
  Sex: Male

DRUGS (3)
  1. ENALAPRIL MALEATE [Suspect]
     Indication: HYPERTENSION
  2. METOCLOPRAMIDE [Concomitant]
  3. ACTIVASE [Suspect]
     Indication: ISCHAEMIC STROKE
     Route: 042

REACTIONS (14)
  - ATRIAL FLUTTER [None]
  - PULMONARY EMBOLISM [None]
  - ANAEMIA [None]
  - URINARY TRACT INFECTION [None]
  - BRAIN OEDEMA [None]
  - DEEP VEIN THROMBOSIS [None]
  - ANTIPHOSPHOLIPID ANTIBODIES [None]
  - PNEUMONIA [None]
  - AGITATION [None]
  - LIVER FUNCTION TEST ABNORMAL [None]
  - ANGIOEDEMA [None]
  - CEREBROVASCULAR ACCIDENT [None]
  - NEUROGENIC BLADDER [None]
  - MENTAL STATUS CHANGES [None]
